FAERS Safety Report 14173513 (Version 2)
Quarter: 2017Q4

REPORT INFORMATION
  Report Type: Spontaneous
  Country: US (occurrence: US)
  Receive Date: 20171109
  Receipt Date: 20171114
  Transmission Date: 20180321
  Serious: No
  Sender: FDA-Public Use
  Company Number: US-PFIZER INC-2017443590

PATIENT
  Age: 84 Year
  Sex: Female
  Weight: 65.76 kg

DRUGS (13)
  1. CARDIA [Suspect]
     Active Substance: AJMALINE
     Indication: ATRIAL FIBRILLATION
     Dosage: 180 MG, 1X/DAY
     Route: 048
     Dates: start: 20170321
  2. VITAMIN D3 [Concomitant]
     Active Substance: CHOLECALCIFEROL
     Dosage: UNK
     Route: 065
  3. MURO 128 [Concomitant]
     Active Substance: SODIUM CHLORIDE
     Dosage: UNK
     Route: 065
  4. ELIQUIS [Suspect]
     Active Substance: APIXABAN
     Indication: CEREBROVASCULAR ACCIDENT PROPHYLAXIS
     Dosage: 2.5 MG, 1X/DAY
     Route: 048
  5. MAGNESIUM [Concomitant]
     Active Substance: MAGNESIUM
     Dosage: UNK
     Route: 065
  6. ARMOUR THYROID [Concomitant]
     Active Substance: THYROID, PORCINE
     Dosage: UNK
     Route: 065
  7. CALCIUM [Concomitant]
     Active Substance: CALCIUM
     Dosage: UNK
     Route: 065
  8. OMEGA 3 /01333901/ [Concomitant]
     Active Substance: FISH OIL\TOCOPHEROL
     Dosage: UNK
     Route: 065
  9. SERTRALINE HCL [Suspect]
     Active Substance: SERTRALINE HYDROCHLORIDE
     Indication: DEPRESSION
     Dosage: 1 DF, QD (1 DF=1,5)
     Route: 048
     Dates: start: 20161229, end: 20171020
  10. CARTIA XT [Concomitant]
     Active Substance: DILTIAZEM HYDROCHLORIDE
     Dosage: UNK
     Route: 065
  11. POTASSIUM [Concomitant]
     Active Substance: POTASSIUM
     Dosage: UNK
     Route: 065
  12. VITAMIN C [Concomitant]
     Active Substance: ASCORBIC ACID
     Dosage: UNK
     Route: 065
  13. SYSTANE (HYPROMELLOSE 2910 (4000 MPA.S)) [Concomitant]
     Active Substance: HYPROMELLOSE 2910 (4000 MPA.S)
     Dosage: UNK
     Route: 065

REACTIONS (5)
  - Off label use [Unknown]
  - Vocal cord disorder [Unknown]
  - Dysphonia [Recovering/Resolving]
  - Dry eye [Unknown]
  - Dry mouth [Unknown]

NARRATIVE: CASE EVENT DATE: 201707
